FAERS Safety Report 4842580-8 (Version None)
Quarter: 2005Q4

REPORT INFORMATION
  Report Type: 
  Country: None (occurrence: None)
  Receive Date: 20051129
  Receipt Date: 20051116
  Transmission Date: 20060501
  Serious: Yes (Other)
  Sender: FDA-Public Use
  Company Number: 2005158386

PATIENT
  Sex: Female

DRUGS (1)
  1. DILANTIN [Suspect]
     Indication: CONVULSION
     Dosage: 300 MG (100 MG 3 IN 1D) ORAL
     Route: 048
     Dates: end: 20051114

REACTIONS (2)
  - CONVULSION [None]
  - DYSPHAGIA [None]
